FAERS Safety Report 9471690 (Version 1)
Quarter: 2013Q3

REPORT INFORMATION
  Report Type: Spontaneous
  Country: IT (occurrence: IT)
  Receive Date: 20130822
  Receipt Date: 20130822
  Transmission Date: 20140515
  Serious: Yes (Disabling)
  Sender: FDA-Public Use
  Company Number: IT-GILEAD-2013-0081860

PATIENT
  Age: 53 Year
  Sex: Female

DRUGS (3)
  1. RANOLAZINE [Suspect]
     Indication: ANGINA PECTORIS
     Route: 048
  2. RANOLAZINE [Suspect]
     Indication: PRINZMETAL ANGINA
  3. DEPONIT [Concomitant]

REACTIONS (8)
  - Diplopia [Not Recovered/Not Resolved]
  - Dysphagia [Not Recovered/Not Resolved]
  - Incontinence [Not Recovered/Not Resolved]
  - Raynaud^s phenomenon [Not Recovered/Not Resolved]
  - Paraesthesia oral [Not Recovered/Not Resolved]
  - Off label use [Recovered/Resolved]
  - Asthenia [Not Recovered/Not Resolved]
  - Tinnitus [Not Recovered/Not Resolved]
